FAERS Safety Report 8197536-7 (Version None)
Quarter: 2012Q1

REPORT INFORMATION
  Report Type: 
  Country: None (occurrence: None)
  Receive Date: 20120309
  Receipt Date: 20120227
  Transmission Date: 20120608
  Serious: Yes (Hospitalization)
  Sender: FDA-Public Use
  Company Number: US-SANOFI-AVENTIS-2012SA013089

PATIENT
  Age: 64 Year
  Sex: Female

DRUGS (3)
  1. TAXOTERE [Suspect]
     Dosage: EVERY 3 WEEKS
     Route: 041
     Dates: start: 20120201, end: 20120201
  2. TAXOTERE [Suspect]
     Dosage: EVERY 3 WEEKS
     Route: 041
     Dates: start: 20120111, end: 20120111
  3. XELODA [Suspect]
     Route: 065

REACTIONS (5)
  - FRACTURE [None]
  - RASH [None]
  - WOUND [None]
  - FALL [None]
  - PALMAR-PLANTAR ERYTHRODYSAESTHESIA SYNDROME [None]
